FAERS Safety Report 4973459-9 (Version None)
Quarter: 2006Q2

REPORT INFORMATION
  Report Type: 
  Country: None (occurrence: None)
  Receive Date: 20060414
  Receipt Date: 20060320
  Transmission Date: 20061013
  Serious: Yes (Death, Life-Threatening)
  Sender: FDA-Public Use
  Company Number: JP-BRISTOL-MYERS SQUIBB COMPANY-13327846

PATIENT
  Age: 3 Year
  Sex: Male

DRUGS (16)
  1. ENDOXAN [Suspect]
     Indication: CONGENITAL APLASTIC ANAEMIA
     Route: 042
     Dates: start: 20050413, end: 20050413
  2. FUNGIZONE [Suspect]
     Indication: INFECTION PROPHYLAXIS
     Route: 048
     Dates: start: 20050411
  3. PREDONINE [Suspect]
     Indication: CONGENITAL APLASTIC ANAEMIA
  4. METHYLPREDNISOLONE [Suspect]
     Indication: CONGENITAL APLASTIC ANAEMIA
  5. CYCLOSPORINE [Suspect]
     Indication: CONGENITAL APLASTIC ANAEMIA
  6. ALKERAN [Suspect]
     Indication: CONGENITAL APLASTIC ANAEMIA
     Route: 041
     Dates: start: 20050408, end: 20050408
  7. FLUDARA [Suspect]
     Indication: CONGENITAL APLASTIC ANAEMIA
     Route: 041
     Dates: start: 20050413, end: 20050418
  8. LYMPHOGLOBULINE [Suspect]
     Indication: CONGENITAL APLASTIC ANAEMIA
     Route: 041
     Dates: start: 20050415, end: 20050418
  9. DENOSINE [Suspect]
     Indication: INFECTION PROPHYLAXIS
     Route: 041
     Dates: start: 20050412, end: 20050418
  10. HEPARIN [Suspect]
     Indication: VENOOCCLUSIVE LIVER DISEASE
     Route: 041
     Dates: start: 20050411
  11. URSOSAN [Suspect]
     Indication: VENOOCCLUSIVE LIVER DISEASE
     Route: 048
     Dates: start: 20050411
  12. BACCIDAL [Suspect]
     Indication: INFECTION PROPHYLAXIS
     Route: 048
     Dates: start: 20050411
  13. ACYCLOVIR [Suspect]
     Indication: INFECTION PROPHYLAXIS
     Route: 048
     Dates: start: 20050411
  14. UNKNOWN [Suspect]
     Indication: PROPHYLAXIS OF NAUSEA AND VOMITING
     Dates: start: 20050412, end: 20050418
  15. RADIOTHERAPY [Concomitant]
     Dates: start: 20050412, end: 20050413
  16. KYTRIL [Suspect]
     Dates: start: 20050412, end: 20050418

REACTIONS (4)
  - ENTEROCOLITIS [None]
  - GRAFT VERSUS HOST DISEASE [None]
  - PNEUMONIA [None]
  - SEPSIS [None]
